FAERS Safety Report 21591182 (Version 2)
Quarter: 2022Q4

REPORT INFORMATION
  Report Type: Spontaneous
  Country: US (occurrence: US)
  Receive Date: 20221114
  Receipt Date: 20221117
  Transmission Date: 20230113
  Serious: No
  Sender: FDA-Public Use
  Company Number: US-SANOFI-01353759

PATIENT
  Age: 61 Year
  Sex: Female

DRUGS (1)
  1. DUPIXENT [Suspect]
     Active Substance: DUPILUMAB
     Indication: Dermatitis atopic
     Dosage: 300 MG, QOW
     Dates: start: 20221008

REACTIONS (10)
  - Lip dry [Unknown]
  - Lip blister [Unknown]
  - Pain [Not Recovered/Not Resolved]
  - Blister [Unknown]
  - Urinary tract infection [Unknown]
  - Urine abnormality [Unknown]
  - Dysuria [Unknown]
  - Pollakiuria [Not Recovered/Not Resolved]
  - Pruritus [Unknown]
  - Therapeutic response unexpected [Unknown]

NARRATIVE: CASE EVENT DATE: 20221104
